FAERS Safety Report 7364039-9 (Version None)
Quarter: 2011Q1

REPORT INFORMATION
  Report Type: 
  Country: None (occurrence: None)
  Receive Date: 20110321
  Receipt Date: 20110307
  Transmission Date: 20110831
  Serious: Yes (Other)
  Sender: FDA-Public Use
  Company Number: PHHY2010FR87496

PATIENT
  Sex: Male
  Weight: 65 kg

DRUGS (2)
  1. AFINITOR [Suspect]
     Indication: RENAL CANCER
     Dosage: 10 MG, QD
     Route: 048
     Dates: start: 20101101, end: 20110101
  2. AFINITOR [Suspect]
     Dosage: 5 MG, QD
     Route: 048
     Dates: start: 20110201

REACTIONS (4)
  - COUGH [None]
  - INTERSTITIAL LUNG DISEASE [None]
  - DYSPNOEA [None]
  - PYREXIA [None]
